FAERS Safety Report 6793392-X (Version None)
Quarter: 2010Q2

REPORT INFORMATION
  Report Type: 
  Country: None (occurrence: None)
  Receive Date: 20100624
  Receipt Date: 20100521
  Transmission Date: 20101027
  Serious: Yes (Other)
  Sender: FDA-Public Use
  Company Number: US-MYLANLABS-2010S1001466

PATIENT
  Age: 48 Year
  Sex: Female

DRUGS (5)
  1. CLOZAPINE [Suspect]
     Indication: SCHIZOPHRENIA, PARANOID TYPE
  2. KLONOPIN [Concomitant]
  3. DILANTIN [Concomitant]
  4. KEPPRA [Concomitant]
  5. DILANTIN [Concomitant]

REACTIONS (1)
  - GRANULOCYTOPENIA [None]
